FAERS Safety Report 20824164 (Version 1)
Quarter: 2022Q2

REPORT INFORMATION
  Report Type: Report from Study
  Country: CA (occurrence: CA)
  Receive Date: 20220513
  Receipt Date: 20220513
  Transmission Date: 20220721
  Serious: Yes (Other)
  Sender: FDA-Public Use
  Company Number: CA-ABBVIE-22K-028-4332767-00

PATIENT
  Age: 73 Year
  Sex: Male
  Weight: 98.518 kg

DRUGS (3)
  1. HUMIRA [Suspect]
     Active Substance: ADALIMUMAB
     Indication: Hidradenitis
     Route: 058
     Dates: start: 20190821
  2. TAMSULOSIN [Concomitant]
     Active Substance: TAMSULOSIN
     Indication: Product used for unknown indication
     Route: 048
  3. ROSUVASTATIN [Concomitant]
     Active Substance: ROSUVASTATIN
     Indication: Product used for unknown indication
     Route: 048

REACTIONS (30)
  - Large intestinal obstruction [Unknown]
  - Metastatic neoplasm [Unknown]
  - Gastrointestinal disorder [Unknown]
  - Product preparation error [Unknown]
  - Wrong technique in product usage process [Unknown]
  - Incorrect dose administered [Unknown]
  - Enterovesical fistula [Unknown]
  - Gastrointestinal wall thickening [Unknown]
  - Bladder hypertrophy [Unknown]
  - Pulmonary mass [Unknown]
  - Hiatus hernia [Unknown]
  - Renal cyst [Unknown]
  - Colonic fistula [Unknown]
  - Mean cell haemoglobin concentration decreased [Unknown]
  - Pneumaturia [Unknown]
  - Appendix disorder [Unknown]
  - Hepatic lesion [Unknown]
  - Cyst [Unknown]
  - Haemangioma [Unknown]
  - Constipation [Not Recovered/Not Resolved]
  - Inflammation [Unknown]
  - Haemoglobin decreased [Unknown]
  - Urinary tract infection [Unknown]
  - Haematocrit decreased [Unknown]
  - Red blood cell count decreased [Unknown]
  - Injection site pain [Unknown]
  - Hidradenitis [Recovered/Resolved]
  - COVID-19 [Recovered/Resolved]
  - Cystitis [Unknown]
  - Device issue [Unknown]

NARRATIVE: CASE EVENT DATE: 20210601
